FAERS Safety Report 15188324 (Version 3)
Quarter: 2019Q2

REPORT INFORMATION
  Report Type: Report from Study
  Country: AU (occurrence: AU)
  Receive Date: 20180724
  Receipt Date: 20190422
  Transmission Date: 20190711
  Serious: Yes (Hospitalization, Other)
  Sender: FDA-Public Use
  Company Number: AU-BRISTOL-MYERS SQUIBB COMPANY-BMS-2018-067514

PATIENT
  Age: 55 Year
  Sex: Female
  Weight: 57 kg

DRUGS (24)
  1. METHOPT [Concomitant]
     Indication: DRY EYE
     Dosage: 1 DF, BID
     Route: 061
     Dates: start: 2007
  2. MS CONTIN [Concomitant]
     Active Substance: MORPHINE SULFATE
     Indication: ABDOMINAL PAIN
     Dosage: 30 MG, BID
     Route: 048
     Dates: start: 201708
  3. OXYCODONE [Concomitant]
     Active Substance: OXYCODONE
     Indication: ABDOMINAL PAIN
     Dosage: 5 MG, PRN
     Route: 048
     Dates: start: 201708
  4. HALOPERIDOL. [Concomitant]
     Active Substance: HALOPERIDOL
     Indication: HICCUPS
     Route: 065
  5. PANZYTRAT                          /00014701/ [Concomitant]
     Indication: PRODUCT USED FOR UNKNOWN INDICATION
     Dosage: 25000 U, Q4H
     Route: 048
     Dates: start: 201702
  6. CODEINE [Concomitant]
     Active Substance: CODEINE
     Indication: DIARRHOEA
     Dosage: 30 MG, PRN
     Route: 048
     Dates: start: 20180624
  7. PANADOL [Concomitant]
     Active Substance: ACETAMINOPHEN
     Indication: ABDOMINAL PAIN
     Dosage: 1 G, PRN
     Route: 048
     Dates: start: 20180712
  8. PREGABALIN. [Concomitant]
     Active Substance: PREGABALIN
     Indication: BACK PAIN
     Dosage: 75 MG, BID
     Route: 048
     Dates: start: 201804
  9. XARELTO [Concomitant]
     Active Substance: RIVAROXABAN
     Indication: PORTAL VEIN THROMBOSIS
     Dosage: 20 MG, QD
     Route: 048
     Dates: start: 20180505, end: 20180609
  10. SOMAC [Concomitant]
     Active Substance: PANTOPRAZOLE SODIUM
     Indication: GASTRIC DISORDER
     Dosage: 40 MG, QD
     Route: 048
     Dates: start: 201702
  11. HALOPERIDOL. [Concomitant]
     Active Substance: HALOPERIDOL
     Indication: ERUCTATION
     Dosage: 0.5 MG, BID
     Route: 048
     Dates: start: 201804
  12. NOVORAPID [Concomitant]
     Active Substance: INSULIN ASPART
     Indication: TYPE 1 DIABETES MELLITUS
     Dosage: 1 DF, PRN
     Route: 058
     Dates: start: 201702
  13. MAGNESIUM [Concomitant]
     Active Substance: MAGNESIUM
     Indication: PRODUCT USED FOR UNKNOWN INDICATION
     Dosage: UNK, PRN
     Route: 048
  14. MORPHINE SULPHATE [Concomitant]
     Active Substance: MORPHINE SULFATE
     Indication: ABDOMINAL PAIN
     Dosage: 5 MG, TID
     Route: 048
     Dates: start: 201804
  15. DOMPERIDONE [Concomitant]
     Active Substance: DOMPERIDONE
     Indication: GASTRIC DISORDER
     Dosage: 10 MG, TID
     Route: 048
     Dates: start: 201702
  16. RANITIDINE. [Concomitant]
     Active Substance: RANITIDINE
     Indication: GASTRIC DISORDER
     Dosage: 150 MG, BID
     Route: 048
     Dates: start: 201804
  17. VITAMIN A                          /00056001/ [Concomitant]
     Active Substance: RETINOL
     Indication: DRY EYE
     Dosage: 1000 MG, QD
     Route: 048
  18. NIVOLUMAB [Suspect]
     Active Substance: NIVOLUMAB
     Indication: PANCREATIC CARCINOMA METASTATIC
     Dosage: 240 MG, UNK
     Route: 065
     Dates: start: 20180618
  19. PG545 [Suspect]
     Active Substance: PIXATIMOD SODIUM
     Indication: PANCREATIC CARCINOMA METASTATIC
     Dosage: 25 MG, UNK
     Route: 065
     Dates: start: 20180618
  20. PROBIOTIC                          /06395501/ [Concomitant]
     Active Substance: BIFIDOBACTERIUM ANIMALIS LACTIS
     Indication: ADVERSE EVENT
     Dosage: UNK, PRN
     Route: 048
  21. CHARCOAL [Concomitant]
     Active Substance: ACTIVATED CHARCOAL
     Indication: FLATULENCE
     Dosage: 20 MG, PRN
     Route: 048
  22. RENNIE                             /01739201/ [Concomitant]
     Active Substance: CALCIUM CARBONATE\MAGNESIUM CARBONATE
     Indication: DIARRHOEA
     Dosage: UNK, PRN
     Route: 048
     Dates: start: 20180501
  23. LANTUS [Concomitant]
     Active Substance: INSULIN GLARGINE
     Indication: TYPE 1 DIABETES MELLITUS
     Dosage: 1 DF, UNK
     Route: 058
     Dates: start: 201702
  24. CLEXANE [Concomitant]
     Active Substance: ENOXAPARIN SODIUM
     Indication: PORTAL VEIN THROMBOSIS
     Dosage: 60 MG, QD
     Route: 058
     Dates: start: 20180609

REACTIONS (1)
  - Encephalopathy [Recovered/Resolved]

NARRATIVE: CASE EVENT DATE: 20180717
